FAERS Safety Report 4826468-4 (Version None)
Quarter: 2005Q4

REPORT INFORMATION
  Report Type: 
  Country: None (occurrence: None)
  Receive Date: 20051014
  Receipt Date: 20050908
  Transmission Date: 20060501
  Serious: Yes (Other)
  Sender: FDA-Public Use
  Company Number: 2005099886

PATIENT
  Age: 70 Year
  Sex: Female
  Weight: 83.0083 kg

DRUGS (15)
  1. MACUGEN [Suspect]
     Indication: CHOROIDAL NEOVASCULARISATION
     Dosage: 0.3 MG (0.3 MG,1 IN 6 WK),INTRAVENOUS
     Route: 042
  2. MACUGEN [Suspect]
     Indication: MACULAR DEGENERATION
     Dosage: 0.3 MG (0.3 MG,1 IN 6 WK),INTRAVENOUS
     Route: 042
  3. ALPRAZOLAM [Concomitant]
  4. PREVACID (PREVACID) [Concomitant]
  5. SYNTHROID [Concomitant]
  6. AEROBID [Concomitant]
  7. BECONASE (BECLOMETHASONE DIPROPIONATE) [Concomitant]
  8. OCUVITE (ASCORBIC ACID, RETINOL, TOCOPHEROL) [Concomitant]
  9. GRAPE SEED EXTRACT (VITIS VINIFERA EXTRACT) [Concomitant]
  10. CARTILAGE (CARTILAGE) [Concomitant]
  11. DARVON [Concomitant]
  12. IBUPROFEN [Concomitant]
  13. ARTIFICIAL TEARS (ARTIFICIAL TEARS) [Concomitant]
  14. ALBUTEROL [Concomitant]
  15. VITAMINS (VITAMINS) [Concomitant]

REACTIONS (2)
  - CHORIORETINAL SCAR [None]
  - ENDOPHTHALMITIS [None]
